FAERS Safety Report 5498506-X (Version None)
Quarter: 2007Q4

REPORT INFORMATION
  Report Type: 
  Country: None (occurrence: None)
  Receive Date: 20071025
  Receipt Date: 20071025
  Transmission Date: 20080405
  Serious: No
  Sender: FDA-Public Use
  Company Number: None

PATIENT
  Age: 24 Year
  Sex: Female
  Weight: 77.1115 kg

DRUGS (2)
  1. MEFLOQUINE [Suspect]
     Indication: MALARIA PROPHYLAXIS
     Dosage: ONE TABLET WEEKLY TWO YEARS PO
     Route: 048
     Dates: start: 20050524
  2. PRIMAQUINE [Suspect]
     Indication: MALARIA PROPHYLAXIS
     Dosage: 2 TABLETS DAILY 1X14 DAYS PO
     Route: 048
     Dates: start: 20071021

REACTIONS (8)
  - ABNORMAL DREAMS [None]
  - ALOPECIA [None]
  - CONFUSIONAL STATE [None]
  - DEPRESSION [None]
  - INSOMNIA [None]
  - SLEEP TERROR [None]
  - SYNCOPE [None]
  - VERTIGO [None]
